FAERS Safety Report 21673885 (Version 1)
Quarter: 2022Q4

REPORT INFORMATION
  Report Type: Spontaneous
  Country: US (occurrence: None)
  Receive Date: 20221201
  Receipt Date: 20221201
  Transmission Date: 20230113
  Serious: Yes (Other)
  Sender: FDA-Public Use
  Company Number: None

PATIENT
  Age: 21 Year
  Sex: Female
  Weight: 52.8 kg

DRUGS (1)
  1. GIVOSIRAN [Suspect]
     Active Substance: GIVOSIRAN
     Dosage: FREQUENCY : MONTHLY;?
     Route: 058
     Dates: start: 20220908

REACTIONS (1)
  - Blood homocysteine increased [None]

NARRATIVE: CASE EVENT DATE: 20221122
